FAERS Safety Report 10565197 (Version 1)
Quarter: 2014Q4

REPORT INFORMATION
  Report Type: Spontaneous
  Country: NL (occurrence: None)
  Receive Date: 20141103
  Receipt Date: 20141103
  Transmission Date: 20150529
  Serious: Yes (Hospitalization, Other)
  Sender: FDA-Public Use
  Company Number: FK201404645

PATIENT
  Age: 29 Year
  Sex: Male

DRUGS (2)
  1. METRONIDAZOLE. [Suspect]
     Active Substance: METRONIDAZOLE
     Indication: NEOPLASM OF APPENDIX
     Route: 042
  2. CEFUROXIME. [Suspect]
     Active Substance: CEFUROXIME
     Indication: NEOPLASM OF APPENDIX
     Route: 042

REACTIONS (3)
  - Prothrombin time prolonged [None]
  - Activated partial thromboplastin time prolonged [None]
  - Anti factor V antibody positive [None]
